FAERS Safety Report 10228349 (Version 1)
Quarter: 2014Q2

REPORT INFORMATION
  Report Type: Spontaneous
  Country: US (occurrence: US)
  Receive Date: 20140610
  Receipt Date: 20140610
  Transmission Date: 20141212
  Serious: Yes (Other)
  Sender: FDA-Public Use
  Company Number: US-BAYER-2014-084393

PATIENT
  Sex: Female

DRUGS (4)
  1. OCELLA [Suspect]
  2. YASMIN [Suspect]
  3. GIANVI [Suspect]
  4. YAZ [Suspect]

REACTIONS (5)
  - Deep vein thrombosis [None]
  - Injury [None]
  - Pain [None]
  - Emotional distress [None]
  - Pain [None]
